FAERS Safety Report 4624142-0 (Version None)
Quarter: 2005Q1

REPORT INFORMATION
  Report Type: 
  Country: None (occurrence: None)
  Receive Date: 20050331
  Receipt Date: 20050323
  Transmission Date: 20050727
  Serious: Yes (Other)
  Sender: FDA-Public Use
  Company Number: US-GLAXOSMITHKLINE-A0551013A

PATIENT
  Age: 18 Year
  Sex: Female

DRUGS (2)
  1. LAMICTAL [Suspect]
     Route: 048
     Dates: start: 20041201, end: 20050317
  2. KLONOPIN [Concomitant]

REACTIONS (8)
  - ANAPHYLACTIC SHOCK [None]
  - OEDEMA MOUTH [None]
  - OROPHARYNGEAL SWELLING [None]
  - RASH [None]
  - SINUSITIS [None]
  - SWOLLEN TONGUE [None]
  - URINARY TRACT INFECTION [None]
  - VOMITING [None]
